FAERS Safety Report 5892361-1 (Version None)
Quarter: 2008Q3

REPORT INFORMATION
  Report Type: 
  Country: None (occurrence: None)
  Receive Date: 20080919
  Receipt Date: 20080919
  Transmission Date: 20090109
  Serious: Yes (Life-Threatening)
  Sender: FDA-Public Use
  Company Number: None

PATIENT
  Age: 24 Year
  Sex: Female

DRUGS (1)
  1. OXCARBAZEPINE [Suspect]
     Indication: BIPOLAR II DISORDER
     Dosage: 1 TAB BID + 4-5 @ HS
     Dates: start: 20080903

REACTIONS (10)
  - CRYING [None]
  - DISTURBANCE IN ATTENTION [None]
  - HEADACHE [None]
  - MANIA [None]
  - MENTAL IMPAIRMENT [None]
  - PHARMACEUTICAL PRODUCT COMPLAINT [None]
  - PYREXIA [None]
  - TREATMENT FAILURE [None]
  - VISION BLURRED [None]
  - VOMITING [None]
